FAERS Safety Report 9258136 (Version 1)
Quarter: 2013Q2

REPORT INFORMATION
  Report Type: Spontaneous
  Country: AU (occurrence: AU)
  Receive Date: 20130426
  Receipt Date: 20130426
  Transmission Date: 20140414
  Serious: Yes (Other)
  Sender: FDA-Public Use
  Company Number: AU-BRISTOL-MYERS SQUIBB COMPANY-18578146

PATIENT
  Age: 60 Year
  Sex: Female

DRUGS (4)
  1. BYETTA PEN DISPOSABLE [Suspect]
     Indication: DIABETES MELLITUS
     Dosage: THERAPY ON JAN11
     Route: 058
     Dates: start: 2010, end: 2012
  2. DIABEX [Concomitant]
  3. GOPTEN [Concomitant]
  4. CRESTOR [Concomitant]

REACTIONS (1)
  - Lung cancer metastatic [Not Recovered/Not Resolved]
